FAERS Safety Report 4840558-1 (Version None)
Quarter: 2005Q4

REPORT INFORMATION
  Report Type: 
  Country: None (occurrence: None)
  Receive Date: 20051130
  Receipt Date: 20051013
  Transmission Date: 20060501
  Serious: Yes (Life-Threatening, Hospitalization)
  Sender: FDA-Public Use
  Company Number: US-BRISTOL-MYERS SQUIBB COMPANY-13145115

PATIENT
  Age: 63 Year
  Sex: Male

DRUGS (4)
  1. ERBITUX [Suspect]
     Indication: COLORECTAL CANCER METASTATIC
     Dosage: INITIAL DOSE OF 400 MG/M2 TO BE INFUSED.  PATIENT RECEIVED ONLY ^A FEW DROPS.^
     Route: 041
     Dates: start: 20051004, end: 20051004
  2. ERBITUX [Suspect]
     Route: 041
     Dates: start: 20051004, end: 20051004
  3. BENADRYL [Concomitant]
     Indication: PREMEDICATION
     Dates: start: 20051004, end: 20051004
  4. TYLENOL [Concomitant]
     Indication: PREMEDICATION
     Dates: start: 20051004, end: 20051004

REACTIONS (1)
  - INFUSION RELATED REACTION [None]
